FAERS Safety Report 7461222-9 (Version None)
Quarter: 2011Q2

REPORT INFORMATION
  Report Type: 
  Country: None (occurrence: None)
  Receive Date: 20110505
  Receipt Date: 20110428
  Transmission Date: 20111010
  Serious: Yes (Other)
  Sender: FDA-Public Use
  Company Number: IE-BRISTOL-MYERS SQUIBB COMPANY-15705478

PATIENT
  Age: 52 Year
  Sex: Female

DRUGS (4)
  1. ORENCIA [Suspect]
     Indication: RHEUMATOID ARTHRITIS
     Dosage: 2 INF 19JAN11 1ST INFU ON 5JAN11. 02FEB11
     Dates: start: 20110105, end: 20110101
  2. METHOTREXATE [Concomitant]
     Indication: RHEUMATOID ARTHRITIS
     Route: 048
     Dates: start: 20101206
  3. FOLIC ACID [Concomitant]
     Indication: RHEUMATOID ARTHRITIS
     Route: 048
     Dates: start: 20101208
  4. RELIFEX [Concomitant]
     Indication: RHEUMATOID ARTHRITIS
     Dosage: 500MG/5ML
     Route: 048
     Dates: start: 20101208

REACTIONS (5)
  - WEIGHT INCREASED [None]
  - OEDEMA PERIPHERAL [None]
  - MOUTH ULCERATION [None]
  - HOT FLUSH [None]
  - JOINT SWELLING [None]
